FAERS Safety Report 5578462-6 (Version None)
Quarter: 2007Q4

REPORT INFORMATION
  Report Type: 
  Country: None (occurrence: None)
  Receive Date: 20071231
  Receipt Date: 20071226
  Transmission Date: 20080405
  Serious: Yes (Death, Other)
  Sender: FDA-Public Use
  Company Number: JP-PFIZER INC-2007107894

PATIENT
  Age: 43 Year
  Sex: Male

DRUGS (1)
  1. SOLU-MEDROL [Suspect]
     Indication: JUVENILE ARTHRITIS
     Dosage: DAILY DOSE:1000MG-FREQ:DAILY
     Route: 042

REACTIONS (1)
  - PANCREATITIS [None]
